FAERS Safety Report 22031193 (Version 2)
Quarter: 2023Q1

REPORT INFORMATION
  Report Type: Spontaneous
  Country: DE (occurrence: DE)
  Receive Date: 20230223
  Receipt Date: 20230309
  Transmission Date: 20230418
  Serious: Yes (Other)
  Sender: FDA-Public Use
  Company Number: DE-MLMSERVICE-20230215-4106871-1

PATIENT
  Age: 70 Year
  Sex: Female

DRUGS (2)
  1. PREDNISOLONE [Suspect]
     Active Substance: PREDNISOLONE
     Indication: Acquired Von Willebrand^s disease
     Dosage: RE-ADMINISTRATION AFTER 6 MONTHS OF FIRST THERAPY
     Route: 065
  2. HAEMATE [Concomitant]
     Active Substance: ANTIHEMOPHILIC FACTOR HUMAN
     Indication: Acquired Von Willebrand^s disease
     Dosage: INTERMITTENT SUBSTITUTION

REACTIONS (2)
  - Drug ineffective [Unknown]
  - Hyperglycaemia [Unknown]
